FAERS Safety Report 15294686 (Version 1)
Quarter: 2018Q3

REPORT INFORMATION
  Report Type: Spontaneous
  Country: US (occurrence: US)
  Receive Date: 20180807
  Receipt Date: 20180807
  Transmission Date: 20181010
  Serious: Yes (Life-Threatening)
  Sender: FDA-Public Use
  Company Number: None

PATIENT
  Age: 51 Year
  Sex: Male

DRUGS (1)
  1. DEXTROSE/HEPARIN [Suspect]
     Active Substance: DEXTROSE\HEPARIN
     Indication: EMBOLISM VENOUS
     Dates: start: 20180413, end: 20180415

REACTIONS (13)
  - Swelling [None]
  - Respiratory tract oedema [None]
  - Syncope [None]
  - Bradycardia [None]
  - Activated partial thromboplastin time prolonged [None]
  - Pulmonary embolism [None]
  - Electrocardiogram abnormal [None]
  - Haematoma [None]
  - Myocardial strain [None]
  - Hypotension [None]
  - Troponin increased [None]
  - Presyncope [None]
  - Tachycardia [None]

NARRATIVE: CASE EVENT DATE: 20180415
